FAERS Safety Report 8538221-9 (Version None)
Quarter: 2012Q3

REPORT INFORMATION
  Report Type: 
  Country: None (occurrence: None)
  Receive Date: 20120726
  Receipt Date: 20120718
  Transmission Date: 20120928
  Serious: Yes (Hospitalization)
  Sender: FDA-Public Use
  Company Number: US-BIOGENIDEC-2012BI013797

PATIENT
  Age: 61 Year
  Sex: Female

DRUGS (8)
  1. AVONEX [Suspect]
     Indication: MULTIPLE SCLEROSIS
     Route: 030
     Dates: start: 20100310
  2. AVONEX [Suspect]
     Route: 030
     Dates: start: 20120101, end: 20120228
  3. DILAUDID [Concomitant]
     Dates: start: 20120305
  4. AVONEX [Suspect]
     Route: 030
     Dates: start: 20120501
  5. NAC DIAGNOSTIC REAGENT [Concomitant]
     Dates: start: 20120308
  6. AVONEX [Suspect]
     Route: 030
     Dates: start: 20120228, end: 20120430
  7. ACETAMINOPHEN [Concomitant]
  8. PERCOCET [Concomitant]
     Dates: start: 20120301, end: 20120305

REACTIONS (3)
  - SPINAL OSTEOARTHRITIS [None]
  - HEPATOTOXICITY [None]
  - LUMBAR RADICULOPATHY [None]
